FAERS Safety Report 4536053-X (Version None)
Quarter: 2004Q4

REPORT INFORMATION
  Report Type: 
  Country: None (occurrence: None)
  Receive Date: 20041214
  Receipt Date: 20031105
  Transmission Date: 20050328
  Serious: Yes (Other)
  Sender: FDA-Public Use
  Company Number: 2003184322US

PATIENT
  Sex: 0

DRUGS (3)
  1. XANAX [Suspect]
  2. ZYRTEC [Suspect]
  3. PAXIL [Suspect]

REACTIONS (1)
  - WEIGHT DECREASED [None]
